FAERS Safety Report 8541922-X (Version None)
Quarter: 2012Q3

REPORT INFORMATION
  Report Type: 
  Country: None (occurrence: None)
  Receive Date: 20120726
  Receipt Date: 20111013
  Transmission Date: 20120928
  Serious: No
  Sender: FDA-Public Use
  Company Number: US-ASTRAZENECA-2011SE54656

PATIENT
  Age: 81 Year
  Sex: Female
  Weight: 78.9 kg

DRUGS (11)
  1. ZETIA [Concomitant]
     Indication: BLOOD CHOLESTEROL INCREASED
  2. AMLODIPINE [Concomitant]
     Indication: HYPERTENSION
  3. VITAMIN B-12 [Concomitant]
  4. NAMENDA [Concomitant]
  5. EXELON [Concomitant]
  6. GABAPENTIN [Concomitant]
     Indication: PAIN
  7. SIMVASTATIN [Concomitant]
     Indication: BLOOD CHOLESTEROL INCREASED
  8. SEROQUEL [Suspect]
     Indication: DELUSION
     Route: 048
     Dates: start: 20110901
  9. GLYBURIDE [Concomitant]
     Indication: DIABETES MELLITUS
  10. SEROQUEL [Suspect]
     Route: 048
  11. SEROQUEL [Suspect]
     Route: 048

REACTIONS (5)
  - DYSARTHRIA [None]
  - HYPERSOMNIA [None]
  - URINARY TRACT INFECTION [None]
  - OFF LABEL USE [None]
  - INAPPROPRIATE SCHEDULE OF DRUG ADMINISTRATION [None]
